FAERS Safety Report 7294006-5 (Version None)
Quarter: 2011Q1

REPORT INFORMATION
  Report Type: 
  Country: None (occurrence: None)
  Receive Date: 20110203
  Receipt Date: 20110118
  Transmission Date: 20110831
  Serious: Yes (Death)
  Sender: FDA-Public Use
  Company Number: B0695051A

PATIENT
  Age: 53 Year
  Sex: Female

DRUGS (5)
  1. ZOLPIDEM [Suspect]
     Dosage: ORAL
     Route: 048
  2. PAROXETINE HYDROCHLORIDE [Suspect]
     Dosage: ORAL
     Route: 048
  3. NITROGLYCERINE (FORMULATION UNKNOWN) (GENERIC) (NITROGLYCERIN) [Suspect]
     Dosage: ORAL
     Route: 048
  4. BENAZEPRIL HYDROCHLORIDE (FORMULATION UNKNOWN) (GENERIC) (BENAZEPRIL H [Suspect]
     Dosage: ORAL
     Route: 048
  5. AMLODIPINE (FORMULATION UNKNOWN) (GENERIC) (AMLODIPINE) [Suspect]
     Dosage: ORAL
     Route: 048

REACTIONS (1)
  - COMPLETED SUICIDE [None]
